FAERS Safety Report 19035884 (Version 1)
Quarter: 2021Q1

REPORT INFORMATION
  Report Type: Spontaneous
  Country: IL (occurrence: IL)
  Receive Date: 20210321
  Receipt Date: 20210321
  Transmission Date: 20210420
  Serious: Yes (Death, Hospitalization, Other)
  Sender: FDA-Public Use
  Company Number: IL-AUROBINDO-AUR-APL-2021-010978

PATIENT
  Age: 69 Year
  Sex: Male

DRUGS (11)
  1. DOXORUBICIN [Suspect]
     Active Substance: DOXORUBICIN
     Indication: B-CELL LYMPHOMA
     Dosage: 1, EVERY 3 WEEKS
     Route: 042
     Dates: start: 20070605, end: 200711
  2. CYCLOPHOSPHAMIDE. [Suspect]
     Active Substance: CYCLOPHOSPHAMIDE
     Indication: B-CELL LYMPHOMA
     Dosage: 1, EVERY 3 WEEKS
     Route: 042
     Dates: start: 20070605, end: 200711
  3. MABTHERA [Suspect]
     Active Substance: RITUXIMAB
     Indication: B-CELL LYMPHOMA
     Dosage: 1, EVERY 3 WEEKS
     Route: 042
     Dates: start: 20070605, end: 200711
  4. MABTHERA [Suspect]
     Active Substance: RITUXIMAB
     Dosage: 1, EVERY 3 WEEKS
     Route: 042
     Dates: start: 20080311, end: 20080311
  5. MABTHERA [Suspect]
     Active Substance: RITUXIMAB
     Dosage: 500 MILLIGRAM, EVERY 3 WEEKS
     Route: 042
     Dates: start: 20081016, end: 20081016
  6. VINCRISTINE SULFATE. [Suspect]
     Active Substance: VINCRISTINE SULFATE
     Indication: B-CELL LYMPHOMA
     Dosage: 1, EVERY 3 WEEKS
     Route: 042
     Dates: start: 20070605, end: 200711
  7. ZEVALIN [Suspect]
     Active Substance: IBRITUMOMAB TIUXETAN
     Indication: B-CELL LYMPHOMA
     Dosage: UNK
     Route: 042
     Dates: start: 20081016, end: 20081023
  8. ZEVALIN [Suspect]
     Active Substance: IBRITUMOMAB TIUXETAN
     Dosage: 1, EVERY 3 WEEKS
     Route: 065
     Dates: start: 20081023
  9. MABTHERA [Suspect]
     Active Substance: RITUXIMAB
     Dosage: 500 MILLIGRAM, EVERY 3 WEEKS
     Route: 042
     Dates: start: 20081023, end: 20081023
  10. PREDNISOLONE. [Suspect]
     Active Substance: PREDNISOLONE
     Indication: B-CELL LYMPHOMA
     Dosage: 1, EVERY 3 WEEKS
     Route: 042
     Dates: start: 20070605, end: 200711
  11. MABTHERA [Suspect]
     Active Substance: RITUXIMAB
     Dosage: 1, EVERY 3 WEEKS
     Route: 042
     Dates: start: 20071211, end: 20071211

REACTIONS (3)
  - Febrile neutropenia [Not Recovered/Not Resolved]
  - Neutropenia [Unknown]
  - Tuberculosis of central nervous system [Fatal]

NARRATIVE: CASE EVENT DATE: 20071006
